FAERS Safety Report 19774030 (Version 1)
Quarter: 2021Q3

REPORT INFORMATION
  Report Type: Spontaneous
  Country: US (occurrence: US)
  Receive Date: 20210831
  Receipt Date: 20210831
  Transmission Date: 20211014
  Serious: Yes (Other)
  Sender: FDA-Public Use
  Company Number: US-SA-2021SA286712

PATIENT
  Sex: Male
  Weight: 72.56 kg

DRUGS (1)
  1. DUPIXENT [Suspect]
     Active Substance: DUPILUMAB
     Dosage: UNK
     Dates: start: 2019

REACTIONS (2)
  - Glucose-6-phosphate dehydrogenase deficiency [Unknown]
  - Bell^s palsy [Unknown]

NARRATIVE: CASE EVENT DATE: 2021
